FAERS Safety Report 12478539 (Version 5)
Quarter: 2019Q3

REPORT INFORMATION
  Report Type: Report from Study
  Country: JP (occurrence: JP)
  Receive Date: 20160618
  Receipt Date: 20190718
  Transmission Date: 20191004
  Serious: Yes (Death, Other)
  Sender: FDA-Public Use
  Company Number: JP-BRISTOL-MYERS SQUIBB COMPANY-BMS-2015-003139

PATIENT
  Age: 75 Year
  Sex: Male
  Weight: 40 kg

DRUGS (10)
  1. NIVOLUMAB [Suspect]
     Active Substance: NIVOLUMAB
     Indication: PRODUCT USED FOR UNKNOWN INDICATION
     Dosage: 2 MILLIGRAM/KILOGRAM
     Route: 041
     Dates: start: 20150206, end: 20150206
  2. AVOLVE [Concomitant]
     Active Substance: DUTASTERIDE
     Indication: PRODUCT USED FOR UNKNOWN INDICATION
     Route: 065
  3. NIVOLUMAB [Suspect]
     Active Substance: NIVOLUMAB
     Indication: MALIGNANT MELANOMA
     Dosage: 2 MILLIGRAM/KILOGRAM
     Route: 041
     Dates: start: 20141126, end: 20141126
  4. NIVOLUMAB [Suspect]
     Active Substance: NIVOLUMAB
     Indication: PRODUCT USED FOR UNKNOWN INDICATION
     Dosage: 2 MILLIGRAM/KILOGRAM
     Route: 041
     Dates: start: 20151022, end: 20151022
  5. NIVOLUMAB [Suspect]
     Active Substance: NIVOLUMAB
     Indication: PRODUCT USED FOR UNKNOWN INDICATION
     Dosage: 2 MILLIGRAM/KILOGRAM
     Route: 041
     Dates: start: 20141219, end: 20141219
  6. NIVOLUMAB [Suspect]
     Active Substance: NIVOLUMAB
     Indication: PRODUCT USED FOR UNKNOWN INDICATION
     Dosage: 2 MILLIGRAM/KILOGRAM
     Route: 041
     Dates: start: 20151117, end: 20151117
  7. URSO [Concomitant]
     Active Substance: URSODIOL
     Indication: PRODUCT USED FOR UNKNOWN INDICATION
     Route: 065
  8. FLIVAS [Concomitant]
     Active Substance: NAFTOPIDIL
     Indication: PRODUCT USED FOR UNKNOWN INDICATION
     Dosage: UNK
     Route: 065
  9. NIVOLUMAB [Suspect]
     Active Substance: NIVOLUMAB
     Indication: PRODUCT USED FOR UNKNOWN INDICATION
     Dosage: 2 MILLIGRAM/KILOGRAM
     Route: 041
     Dates: start: 20150108, end: 20150108
  10. KAYEXALATE [Concomitant]
     Active Substance: SODIUM POLYSTYRENE SULFONATE
     Indication: PRODUCT USED FOR UNKNOWN INDICATION
     Route: 065

REACTIONS (16)
  - Pulmonary sarcoidosis [Not Recovered/Not Resolved]
  - Fibrin D dimer increased [Recovered/Resolved]
  - Alanine aminotransferase decreased [Recovered/Resolved]
  - Hypothyroidism [Not Recovered/Not Resolved]
  - Pyrexia [Recovered/Resolved]
  - Drug ineffective [Unknown]
  - White blood cell count decreased [Recovered/Resolved]
  - Ocular sarcoidosis [Not Recovered/Not Resolved]
  - Uveitis [Not Recovered/Not Resolved]
  - Leukoderma [Not Recovered/Not Resolved]
  - Hepatic enzyme increased [Recovered/Resolved]
  - Vitiligo [Not Recovered/Not Resolved]
  - Malignant neoplasm progression [Fatal]
  - Off label use [Unknown]
  - Metastases to peritoneum [Recovered/Resolved]
  - Pleurisy [Recovered/Resolved]

NARRATIVE: CASE EVENT DATE: 20141201
